FAERS Safety Report 17506001 (Version 1)
Quarter: 2020Q1

REPORT INFORMATION
  Report Type: Spontaneous
  Country: US (occurrence: US)
  Receive Date: 20200306
  Receipt Date: 20200306
  Transmission Date: 20200409
  Serious: No
  Sender: FDA-Public Use
  Company Number: US-009507513-2003USA001457

PATIENT
  Sex: Female

DRUGS (1)
  1. NEXPLANON [Suspect]
     Active Substance: ETONOGESTREL
     Dosage: STRENGTH 68 MG, AN IMPLANT
     Route: 059

REACTIONS (4)
  - Procedural pain [Unknown]
  - Emotional distress [Unknown]
  - Complication of device removal [Not Recovered/Not Resolved]
  - Economic problem [Unknown]
